FAERS Safety Report 19428246 (Version 2)
Quarter: 2023Q2

REPORT INFORMATION
  Report Type: Spontaneous
  Country: DE (occurrence: DE)
  Receive Date: 20210616
  Receipt Date: 20230627
  Transmission Date: 20230722
  Serious: Yes (Congenital Anomaly, Other)
  Sender: FDA-Public Use
  Company Number: DE-JNJFOC-20210626040

PATIENT
  Age: 0 Year

DRUGS (4)
  1. SIMPONI [Suspect]
     Active Substance: GOLIMUMAB
     Indication: Axial spondyloarthritis
     Route: 064
     Dates: start: 20171102, end: 20181023
  2. SIMPONI [Suspect]
     Active Substance: GOLIMUMAB
     Route: 064
     Dates: start: 20180913, end: 20181023
  3. CIMZIA [Suspect]
     Active Substance: CERTOLIZUMAB PEGOL
     Indication: Axial spondyloarthritis
     Route: 064
     Dates: start: 20181106, end: 20190603
  4. SULFASALAZINE [Concomitant]
     Active Substance: SULFASALAZINE
     Indication: Axial spondyloarthritis
     Route: 064
     Dates: start: 20180928, end: 20181106

REACTIONS (2)
  - Developmental hip dysplasia [Recovered/Resolved]
  - Foetal exposure during pregnancy [Recovered/Resolved]

NARRATIVE: CASE EVENT DATE: 20181106
